FAERS Safety Report 6053249-9 (Version None)
Quarter: 2009Q1

REPORT INFORMATION
  Report Type: 
  Country: None (occurrence: None)
  Receive Date: 20090123
  Receipt Date: 20090109
  Transmission Date: 20090719
  Serious: Yes (Hospitalization)
  Sender: FDA-Public Use
  Company Number: 8041083

PATIENT
  Sex: Male

DRUGS (4)
  1. KEPPRA [Suspect]
     Dosage: 2250 MG /D 1750 MG /D
  2. DILANTIN [Concomitant]
  3. LAMICTAL [Concomitant]
  4. TRILEPTAL [Concomitant]

REACTIONS (1)
  - STATUS EPILEPTICUS [None]
